FAERS Safety Report 11185408 (Version 1)
Quarter: 2015Q2

REPORT INFORMATION
  Report Type: Spontaneous
  Country: JP (occurrence: JP)
  Receive Date: 20150612
  Receipt Date: 20150612
  Transmission Date: 20150821
  Serious: Yes (Hospitalization, Other)
  Sender: FDA-Public Use
  Company Number: JP-BAYER-2015-307703

PATIENT
  Age: 33 Year
  Sex: Female

DRUGS (2)
  1. ACETYLSALICYLIC ACID({=100 MG) [Suspect]
     Active Substance: ASPIRIN
     Dosage: UNK
     Route: 048
  2. PREDNISOLONE. [Concomitant]
     Active Substance: PREDNISOLONE
     Dosage: 7.5 MG, QD

REACTIONS (6)
  - Urine analysis abnormal [None]
  - Systemic lupus erythematosus [None]
  - Blood pressure increased [None]
  - Acute kidney injury [None]
  - Maternal exposure during pregnancy [Recovered/Resolved]
  - Pre-eclampsia [None]
